FAERS Safety Report 13665146 (Version 1)
Quarter: 2017Q2

REPORT INFORMATION
  Report Type: Spontaneous
  Country: US (occurrence: US)
  Receive Date: 20170619
  Receipt Date: 20170619
  Transmission Date: 20170830
  Serious: Yes (Other)
  Sender: FDA-Public Use
  Company Number: None

PATIENT
  Age: 63 Year
  Sex: Female
  Weight: 49.5 kg

DRUGS (3)
  1. IBUPROPHEN [Concomitant]
     Active Substance: IBUPROFEN
  2. EXELON [Suspect]
     Active Substance: RIVASTIGMINE TARTRATE
     Indication: DEMENTIA ALZHEIMER^S TYPE
     Dosage: QUANTITY:1 PATCH(ES);?
     Route: 062
     Dates: start: 20170522, end: 20170613
  3. PAXIL [Concomitant]
     Active Substance: PAROXETINE HYDROCHLORIDE

REACTIONS (2)
  - Scar [None]
  - Wound infection [None]

NARRATIVE: CASE EVENT DATE: 20170610
